FAERS Safety Report 9444255 (Version 1)
Quarter: 2013Q3

REPORT INFORMATION
  Report Type: Report from Study
  Country: US (occurrence: US)
  Receive Date: 20130807
  Receipt Date: 20130807
  Transmission Date: 20140515
  Serious: Yes (Other)
  Sender: FDA-Public Use
  Company Number: PHEH2013US016521

PATIENT
  Sex: Male
  Weight: 63.39 kg

DRUGS (15)
  1. ZOMETA [Suspect]
     Indication: PLASMA CELL MYELOMA
     Dosage: 4 MG, UNK
     Route: 042
  2. DECADRON [Concomitant]
     Dosage: 0.5 MG, UNK
     Route: 048
  3. LIPITOR [Concomitant]
     Dosage: 10 MG, UNK
     Route: 048
  4. CARVEDILOL [Concomitant]
     Dosage: 6.25 MG, UNK
     Route: 048
  5. GABAPENTIN [Concomitant]
     Dosage: 100 MG, UNK
     Route: 048
  6. FAMCICLOVIR [Concomitant]
     Dosage: 250 MG, UNK
     Route: 048
  7. LEVOTHYROXIN [Concomitant]
     Dosage: 100 UG, UNK
     Route: 048
  8. LATANOPROST [Concomitant]
     Dosage: UNK UKN, UNK
  9. WARFARIN [Concomitant]
     Dosage: 2 MG, UNK
     Route: 048
  10. VITAMIN D3 [Concomitant]
     Dosage: 1000 U, UNK
     Route: 048
  11. KRILL OIL [Concomitant]
     Dosage: 1000 MG, UNK
     Route: 048
  12. PERCOCET [Concomitant]
     Dosage: 325 MG (10-325 MG)
     Route: 048
  13. CALCIO//CALCIUM [Concomitant]
     Dosage: 500 UNK, UNK
     Route: 048
  14. KYPROLIS [Concomitant]
     Dosage: 60 MG, UNK
  15. ASPIRIN LOW [Concomitant]
     Dosage: 81 MG, UNK

REACTIONS (1)
  - Neuropathy peripheral [Unknown]
